FAERS Safety Report 24324727 (Version 1)
Quarter: 2024Q3

REPORT INFORMATION
  Report Type: Spontaneous
  Country: US (occurrence: US)
  Receive Date: 20240916
  Receipt Date: 20240916
  Transmission Date: 20241016
  Serious: Yes (Other)
  Sender: DR REDDYS
  Company Number: None

PATIENT
  Age: 28 Year
  Sex: Male

DRUGS (9)
  1. MERCAPTOPURINE [Suspect]
     Active Substance: MERCAPTOPURINE
     Indication: Colitis ulcerative
  2. MERCAPTOPURINE [Suspect]
     Active Substance: MERCAPTOPURINE
     Indication: Crohn^s disease
  3. THALIDOMIDE [Suspect]
     Active Substance: THALIDOMIDE
     Indication: Colitis ulcerative
  4. THALIDOMIDE [Suspect]
     Active Substance: THALIDOMIDE
     Indication: Crohn^s disease
  5. INFLIXIMAB [Suspect]
     Active Substance: INFLIXIMAB
     Indication: Colitis ulcerative
  6. INFLIXIMAB [Suspect]
     Active Substance: INFLIXIMAB
     Indication: Crohn^s disease
  7. PREDNISONE [Suspect]
     Active Substance: PREDNISONE
     Indication: Colitis ulcerative
  8. PREDNISONE [Suspect]
     Active Substance: PREDNISONE
     Indication: Crohn^s disease
  9. BUDESONIDE [Suspect]
     Active Substance: BUDESONIDE
     Indication: Autoimmune enteropathy
     Dates: start: 2015, end: 2016

REACTIONS (1)
  - Aplastic anaemia [Unknown]

NARRATIVE: CASE EVENT DATE: 20190201
